FAERS Safety Report 16739820 (Version 1)
Quarter: 2019Q3

REPORT INFORMATION
  Report Type: Spontaneous
  Country: JP (occurrence: JP)
  Receive Date: 20190826
  Receipt Date: 20190826
  Transmission Date: 20191005
  Serious: Yes (Hospitalization)
  Sender: FDA-Public Use
  Company Number: JP-TEVA-2019-JP-1098340

PATIENT
  Age: 15 Month
  Sex: Male

DRUGS (4)
  1. SPIRONOLACTONE. [Suspect]
     Active Substance: SPIRONOLACTONE
     Indication: AORTIC VALVE STENOSIS
  2. FUROSEMIDE. [Suspect]
     Active Substance: FUROSEMIDE
     Indication: CARDIAC FAILURE CHRONIC
     Route: 065
  3. FUROSEMIDE. [Suspect]
     Active Substance: FUROSEMIDE
     Indication: AORTIC VALVE STENOSIS
  4. SPIRONOLACTONE. [Suspect]
     Active Substance: SPIRONOLACTONE
     Indication: CARDIAC FAILURE CHRONIC
     Route: 065

REACTIONS (6)
  - Metabolic acidosis [Unknown]
  - Anuria [Recovering/Resolving]
  - Dehydration [Unknown]
  - Renal impairment [Recovering/Resolving]
  - Hyperuricaemia [Unknown]
  - Condition aggravated [Unknown]
